FAERS Safety Report 8575452-6 (Version None)
Quarter: 2012Q3

REPORT INFORMATION
  Report Type: 
  Country: None (occurrence: None)
  Receive Date: 20120807
  Receipt Date: 20120731
  Transmission Date: 20120928
  Serious: Yes (Other)
  Sender: FDA-Public Use
  Company Number: PHEH2012US015334

PATIENT
  Sex: Female

DRUGS (2)
  1. ZOMETA [Suspect]
     Indication: BREAST CANCER METASTATIC
     Dates: start: 20030101, end: 20080101
  2. AREDIA [Suspect]

REACTIONS (18)
  - ABSCESS [None]
  - EXPOSED BONE IN JAW [None]
  - MENTAL DISORDER [None]
  - PURULENCE [None]
  - PAIN IN EXTREMITY [None]
  - QUALITY OF LIFE DECREASED [None]
  - STRESS FRACTURE [None]
  - OSTEONECROSIS OF JAW [None]
  - OSTEOMYELITIS [None]
  - ULCER [None]
  - MULTIPLE INJURIES [None]
  - FACIAL PAIN [None]
  - PYREXIA [None]
  - SINUSITIS [None]
  - PAIN [None]
  - ORAL DISORDER [None]
  - FEMUR FRACTURE [None]
  - FEAR [None]
